FAERS Safety Report 4756484-2 (Version None)
Quarter: 2005Q3

REPORT INFORMATION
  Report Type: 
  Country: None (occurrence: None)
  Receive Date: 20050830
  Receipt Date: 20050706
  Transmission Date: 20060218
  Serious: Yes (Hospitalization, Disabling, Other)
  Sender: FDA-Public Use
  Company Number: US-GLAXOSMITHKLINE-A0565759A

PATIENT
  Age: 22 Year
  Sex: Female
  Weight: 47.7 kg

DRUGS (4)
  1. WELLBUTRIN [Suspect]
     Indication: DEPRESSION
     Route: 048
     Dates: start: 20050620, end: 20050630
  2. SUDAFED 12 HOUR [Concomitant]
     Route: 048
  3. ALLEGRA-D [Concomitant]
     Indication: MULTIPLE ALLERGIES
     Route: 048
  4. YASMIN [Concomitant]
     Indication: CONTRACEPTION
     Dosage: 1TAB PER DAY
     Route: 048

REACTIONS (2)
  - GRAND MAL CONVULSION [None]
  - TREMOR [None]
